FAERS Safety Report 22344517 (Version 2)
Quarter: 2023Q2

REPORT INFORMATION
  Report Type: Spontaneous
  Country: US (occurrence: US)
  Receive Date: 20230519
  Receipt Date: 20230613
  Transmission Date: 20230721
  Serious: No
  Sender: FDA-Public Use
  Company Number: US-BAYER-2023A069932

PATIENT
  Age: 4 Year
  Sex: Male

DRUGS (1)
  1. KOVALTRY [Suspect]
     Active Substance: ANTIHEMOPHILIC FACTOR, HUMAN RECOMBINANT
     Indication: Factor VIII deficiency
     Dosage: 500 IU DAILY AS NEEDED FOR BLEEDING EPISODES
     Route: 042

REACTIONS (2)
  - Sinusitis [None]
  - Nasopharyngitis [None]

NARRATIVE: CASE EVENT DATE: 20230509
